FAERS Safety Report 21860799 (Version 1)
Quarter: 2023Q1

REPORT INFORMATION
  Report Type: Spontaneous
  Country: US (occurrence: US)
  Receive Date: 20230113
  Receipt Date: 20230113
  Transmission Date: 20230418
  Serious: Yes (Other)
  Sender: FDA-Public Use
  Company Number: US-NOVOPROD-988319

PATIENT
  Age: 37 Year
  Sex: Female
  Weight: 117.01 kg

DRUGS (1)
  1. WEGOVY [Suspect]
     Active Substance: SEMAGLUTIDE
     Indication: Weight control
     Dosage: 1.7 MG, SINGLE
     Route: 058
     Dates: start: 20221025, end: 20221026

REACTIONS (10)
  - Vomiting [Recovered/Resolved]
  - Nausea [Recovered/Resolved]
  - Leukocytosis [Unknown]
  - Back pain [Unknown]
  - Abdominal pain [Unknown]
  - Dizziness [Unknown]
  - Fatigue [Unknown]
  - Product dispensing error [Recovered/Resolved]
  - Incorrect dose administered [Recovered/Resolved]
  - Off label use [Recovered/Resolved]

NARRATIVE: CASE EVENT DATE: 20221025
